FAERS Safety Report 19814789 (Version 1)
Quarter: 2021Q3

REPORT INFORMATION
  Report Type: Spontaneous
  Country: US (occurrence: US)
  Receive Date: 20210910
  Receipt Date: 20210910
  Transmission Date: 20211014
  Serious: Yes (Death, Hospitalization)
  Sender: FDA-Public Use
  Company Number: US-MYLANLABS-2021M1060812

PATIENT
  Age: 67 Year
  Sex: Female

DRUGS (30)
  1. TRAMADOL. [Suspect]
     Active Substance: TRAMADOL
     Indication: PLEURITIC PAIN
     Dosage: UNK
     Route: 065
  2. LIDOCAINE. [Suspect]
     Active Substance: LIDOCAINE
     Indication: PLEURITIC PAIN
     Dosage: UNK
     Route: 065
  3. KETOROLAC [Suspect]
     Active Substance: KETOROLAC TROMETHAMINE
     Indication: PLEURITIC PAIN
     Dosage: 3.8 MILLIGRAM, QH CONTINUOUS INTRAVENOUS INFUSION (CIVI) AT 3.8MG/HOUR (91.2MG/DAY)
     Route: 042
  4. HYDROMORPHONE [Suspect]
     Active Substance: HYDROMORPHONE
     Indication: PLEURITIC PAIN
     Dosage: INTRATHECAL PAIN PUMP
     Route: 037
  5. ALPHA LIPOIC ACID [Suspect]
     Active Substance: .ALPHA.-LIPOIC ACID
     Indication: PLEURITIC PAIN
     Dosage: UNK
     Route: 065
  6. DEXAMETHASONE. [Suspect]
     Active Substance: DEXAMETHASONE
     Indication: PLEURITIC PAIN
     Dosage: UNK
     Route: 065
  7. KETAMINE [Suspect]
     Active Substance: KETAMINE
     Indication: PLEURITIC PAIN
     Dosage: UNK
     Route: 065
  8. INDOMETACIN [Suspect]
     Active Substance: INDOMETHACIN
     Indication: PLEURITIC PAIN
     Dosage: UNK
     Route: 065
  9. NAPROXEN. [Suspect]
     Active Substance: NAPROXEN
     Indication: PLEURITIC PAIN
     Dosage: UNK
     Route: 065
  10. TIZANIDINE. [Suspect]
     Active Substance: TIZANIDINE
     Indication: PLEURITIC PAIN
     Route: 065
  11. LENVATINIB [Suspect]
     Active Substance: LENVATINIB
     Indication: PRODUCT USED FOR UNKNOWN INDICATION
     Dosage: UNK
     Route: 065
  12. KETAMINE [Suspect]
     Active Substance: KETAMINE
     Indication: PLEURITIC PAIN
     Dosage: UNK
     Route: 048
  13. EVEROLIMUS. [Suspect]
     Active Substance: EVEROLIMUS
     Indication: PRODUCT USED FOR UNKNOWN INDICATION
     Dosage: UNK
     Route: 065
  14. KETOROLAC [Suspect]
     Active Substance: KETOROLAC TROMETHAMINE
     Indication: PLEURITIC PAIN
     Dosage: UNK
     Route: 048
  15. NORTRIPTYLINE [Suspect]
     Active Substance: NORTRIPTYLINE
     Indication: PLEURITIC PAIN
     Dosage: UNK
     Route: 065
  16. OXYCODONE [Suspect]
     Active Substance: OXYCODONE
     Indication: PLEURITIC PAIN
     Dosage: UNK
     Route: 065
  17. OXYCODONE HYDROCHLORIDE/PARACETAMOL [Suspect]
     Active Substance: ACETAMINOPHEN\OXYCODONE HYDROCHLORIDE
     Indication: PLEURITIC PAIN
     Dosage: UNK
     Route: 065
  18. CLONIDINE. [Suspect]
     Active Substance: CLONIDINE
     Indication: PLEURITIC PAIN
     Dosage: INTRATHECAL PAIN PUMP
     Route: 037
  19. CELECOXIB. [Suspect]
     Active Substance: CELECOXIB
     Indication: PLEURITIC PAIN
     Dosage: UNK
     Route: 065
  20. METHADONE [Suspect]
     Active Substance: METHADONE HYDROCHLORIDE
     Indication: PLEURITIC PAIN
     Dosage: UNK
     Route: 065
  21. BUPIVACAINE. [Suspect]
     Active Substance: BUPIVACAINE
     Indication: PLEURITIC PAIN
     Dosage: INTRATHECAL PAIN PUMP
     Route: 037
  22. ETODOLAC. [Suspect]
     Active Substance: ETODOLAC
     Indication: PLEURITIC PAIN
     Dosage: UNK
     Route: 065
  23. KETOROLAC [Suspect]
     Active Substance: KETOROLAC TROMETHAMINE
     Dosage: 3 MILLIGRAM, QH CONTINUOUS INTRAVENOUS INFUSION (CIVI) AT 3MG/HOUR (72MG/DAY)
     Route: 042
  24. IBUPROFEN. [Suspect]
     Active Substance: IBUPROFEN
     Indication: PLEURITIC PAIN
     Dosage: UNK
     Route: 065
  25. TRAZODONE [Suspect]
     Active Substance: TRAZODONE HYDROCHLORIDE
     Indication: PLEURITIC PAIN
     Dosage: UNK
     Route: 065
  26. PREGABALIN. [Suspect]
     Active Substance: PREGABALIN
     Indication: PLEURITIC PAIN
     Dosage: UNK
     Route: 065
  27. ACETAMINOPHEN. [Concomitant]
     Active Substance: ACETAMINOPHEN
     Indication: PLEURITIC PAIN
     Dosage: UNK
     Route: 065
  28. MORPHINE [Suspect]
     Active Substance: MORPHINE
     Indication: PLEURITIC PAIN
     Route: 065
  29. GABAPENTIN. [Suspect]
     Active Substance: GABAPENTIN
     Indication: PLEURITIC PAIN
     Dosage: UNK
     Route: 065
  30. OMEPRAZOLE. [Concomitant]
     Active Substance: OMEPRAZOLE
     Indication: PROPHYLAXIS
     Dosage: UNK
     Route: 065

REACTIONS (7)
  - Diffuse alveolar damage [Fatal]
  - Drug ineffective [Unknown]
  - Sedation [Unknown]
  - Constipation [Unknown]
  - Dysphoria [Unknown]
  - Respiratory failure [Fatal]
  - Off label use [Unknown]
